FAERS Safety Report 7712542-1 (Version None)
Quarter: 2011Q3

REPORT INFORMATION
  Report Type: 
  Country: None (occurrence: None)
  Receive Date: 20110823
  Receipt Date: 20110809
  Transmission Date: 20111222
  Serious: Yes (Other)
  Sender: FDA-Public Use
  Company Number: 2011AP001270

PATIENT
  Age: 59 Year
  Sex: Male

DRUGS (7)
  1. DICLOFENAC SODIUM [Concomitant]
  2. RISPERIDONE [Suspect]
     Indication: PSYCHOTIC DISORDER
     Dosage: 4 MG;PO
     Route: 048
     Dates: start: 20101001
  3. RISPERIDONE [Suspect]
     Indication: PSYCHOTIC DISORDER
     Dosage: 4 MG;PO
     Route: 048
     Dates: start: 20110101
  4. OLANZAPINE [Suspect]
     Indication: PSYCHOTIC DISORDER
     Dosage: 5 MG
     Dates: start: 20110301
  5. OLANZAPINE [Suspect]
     Indication: PSYCHOTIC DISORDER
     Dosage: 5 MG
     Dates: start: 20110301
  6. CHLORPROMAZINE [Concomitant]
  7. NIFEDIPINE [Concomitant]

REACTIONS (2)
  - PANIC ATTACK [None]
  - DIPLOPIA [None]
